FAERS Safety Report 18445497 (Version 1)
Quarter: 2020Q4

REPORT INFORMATION
  Report Type: Spontaneous
  Country: US (occurrence: US)
  Receive Date: 20201029
  Receipt Date: 20201029
  Transmission Date: 20210114
  Serious: Yes (Other)
  Sender: FDA-Public Use
  Company Number: None

PATIENT
  Age: 51 Year
  Sex: Male
  Weight: 94.05 kg

DRUGS (8)
  1. ACETAMINOPHEN/CODEINE #3 [Suspect]
     Active Substance: ACETAMINOPHEN\CODEINE PHOSPHATE
     Indication: PAIN
     Route: 048
     Dates: start: 20200224, end: 20200303
  2. CARVEDILOL 25 MG TWICE DAILY WITH FOOD [Concomitant]
     Dates: start: 20121206
  3. FLUTICASONE 50 MCG 1-2 SPRAY INTRANASAL EACH NOSTRIL AS NEEDED [Concomitant]
     Dates: start: 20190627
  4. ESCITALOPRAM 10 MG DAILY [Concomitant]
     Dates: start: 20190930
  5. AMLODIPINE 10 MG DAILY [Concomitant]
     Dates: start: 20121206
  6. DICLOFENAC 1% TOPICAL GEL 2 GRAMS TOPICALLY 4 TIMES DAILY [Concomitant]
     Dates: start: 20200319
  7. MINOXIDIL 10 MG DAILY [Concomitant]
     Dates: start: 20181205
  8. CALCIUM ACETATE 667 MG 2 CAPSULES THREE TIMES DAILY WITH MEALS [Concomitant]
     Dates: start: 20181205

REACTIONS (6)
  - Drug hypersensitivity [None]
  - Therapy cessation [None]
  - Dyspnoea [None]
  - Angioedema [None]
  - Pharyngeal swelling [None]
  - Blood pressure increased [None]

NARRATIVE: CASE EVENT DATE: 20200303
